FAERS Safety Report 11132474 (Version 1)
Quarter: 2015Q2

REPORT INFORMATION
  Report Type: Spontaneous
  Country: SE (occurrence: SE)
  Receive Date: 20150522
  Receipt Date: 20150522
  Transmission Date: 20150821
  Serious: Yes (Other)
  Sender: FDA-Public Use
  Company Number: SE-TEVA-564201USA

PATIENT
  Sex: Female

DRUGS (1)
  1. RIBOVACT [Suspect]
     Active Substance: BENDAMUSTINE HYDROCHLORIDE
     Indication: NEOPLASM MALIGNANT
     Route: 042

REACTIONS (4)
  - Infection [Unknown]
  - Mucosal inflammation [Unknown]
  - Nausea [Unknown]
  - Lung disorder [Unknown]
